FAERS Safety Report 17536853 (Version 1)
Quarter: 2020Q1

REPORT INFORMATION
  Report Type: Spontaneous
  Country: IT (occurrence: IT)
  Receive Date: 20200313
  Receipt Date: 20200313
  Transmission Date: 20200409
  Serious: Yes (Other)
  Sender: FDA-Public Use
  Company Number: IT-ALK-ABELLO A/S-2020AA000898

PATIENT

DRUGS (1)
  1. GRAZAX [Suspect]
     Active Substance: PHLEUM PRATENSE POLLEN
     Indication: RHINITIS ALLERGIC
     Dosage: UNK
     Route: 060
     Dates: start: 20200121, end: 20200204

REACTIONS (2)
  - Dyspnoea [Recovered/Resolved]
  - Laryngeal oedema [Recovered/Resolved]

NARRATIVE: CASE EVENT DATE: 2020
